FAERS Safety Report 16114405 (Version 1)
Quarter: 2019Q1

REPORT INFORMATION
  Report Type: Spontaneous
  Country: US (occurrence: US)
  Receive Date: 20190325
  Receipt Date: 20190325
  Transmission Date: 20190418
  Serious: No
  Sender: FDA-Public Use
  Company Number: US-ALLERGAN-1909559US

PATIENT
  Sex: Male
  Weight: 124.73 kg

DRUGS (2)
  1. LUMIGAN [Suspect]
     Active Substance: BIMATOPROST
     Indication: OCULAR HYPERTENSION
     Dosage: 2 GTT, QD
     Route: 047
     Dates: start: 2014
  2. WARFARIN [Concomitant]
     Active Substance: WARFARIN
     Indication: BLOOD DISORDER

REACTIONS (3)
  - Accidental exposure to product [Unknown]
  - Incorrect dosage administered [Unknown]
  - Product dropper issue [Unknown]
